FAERS Safety Report 8006419-4 (Version None)
Quarter: 2011Q4

REPORT INFORMATION
  Report Type: 
  Country: None (occurrence: None)
  Receive Date: 20111226
  Receipt Date: 20111221
  Transmission Date: 20120403
  Serious: Yes (Hospitalization)
  Sender: FDA-Public Use
  Company Number: US-ACTELION-A-NJ2011-58707

PATIENT

DRUGS (4)
  1. TYVASO [Suspect]
     Dosage: UNK
     Dates: end: 20110101
  2. COUMADIN [Concomitant]
  3. TRACLEER [Suspect]
     Indication: PULMONARY ARTERIAL HYPERTENSION
     Dosage: UNK
     Route: 048
     Dates: start: 20090720
  4. ADCIRCA [Concomitant]

REACTIONS (4)
  - ADVERSE DRUG REACTION [None]
  - VOMITING [None]
  - NAUSEA [None]
  - DIARRHOEA [None]
